FAERS Safety Report 8343462-X (Version None)
Quarter: 2012Q2

REPORT INFORMATION
  Report Type: 
  Country: None (occurrence: None)
  Receive Date: 20120508
  Receipt Date: 20120504
  Transmission Date: 20120825
  Serious: Yes (Other)
  Sender: FDA-Public Use
  Company Number: PHHY2012AU022881

PATIENT

DRUGS (2)
  1. GLEEVEC [Suspect]
     Indication: GASTROINTESTINAL STROMAL TUMOUR
     Dosage: 800 MG, UNK
     Route: 048
     Dates: start: 20100701, end: 20110901
  2. GLEEVEC [Suspect]
     Dosage: 1000 MG, UNK
     Route: 048
     Dates: start: 20110901, end: 20120201

REACTIONS (5)
  - GENERALISED OEDEMA [None]
  - ALBINISM [None]
  - NEOPLASM MALIGNANT [None]
  - NEOPLASM PROGRESSION [None]
  - ASCITES [None]
